FAERS Safety Report 11209486 (Version 1)
Quarter: 2015Q2

REPORT INFORMATION
  Report Type: Spontaneous
  Country: US (occurrence: US)
  Receive Date: 20150622
  Receipt Date: 20150622
  Transmission Date: 20150821
  Serious: Yes (Hospitalization)
  Sender: FDA-Public Use
  Company Number: US-MPIJNJ-2011-06194

PATIENT
  Age: 63 Year
  Sex: Male

DRUGS (4)
  1. CYCLOPHOSPHAMIDE. [Suspect]
     Active Substance: CYCLOPHOSPHAMIDE
     Indication: PLASMA CELL MYELOMA
     Dosage: 650 MG, CYCLIC
     Route: 048
     Dates: start: 20110627, end: 20110808
  2. DEXAMETHASONE. [Suspect]
     Active Substance: DEXAMETHASONE
     Indication: PLASMA CELL MYELOMA
     Dosage: 20 MG, CYCLIC
     Route: 048
     Dates: start: 20110627, end: 20110808
  3. VELCADE [Suspect]
     Active Substance: BORTEZOMIB
     Indication: PLASMA CELL MYELOMA
     Dosage: 3.3 MG, CYCLIC
     Route: 042
     Dates: start: 20110627, end: 20110808
  4. ZOLEDRONIC ACID [Suspect]
     Active Substance: ZOLEDRONIC ACID
     Indication: PLASMA CELL MYELOMA
     Dosage: 4 MG, CYCLIC
     Route: 042
     Dates: start: 20110401, end: 20110627

REACTIONS (5)
  - Hyponatraemia [Recovered/Resolved]
  - Serratia sepsis [Recovered/Resolved with Sequelae]
  - Thrombocytopenia [Unknown]
  - Hypokalaemia [Recovered/Resolved]
  - Anaemia [Unknown]

NARRATIVE: CASE EVENT DATE: 20110928
